FAERS Safety Report 12063285 (Version 2)
Quarter: 2016Q1

REPORT INFORMATION
  Report Type: Spontaneous
  Country: CH (occurrence: CH)
  Receive Date: 20160210
  Receipt Date: 20160303
  Transmission Date: 20160526
  Serious: Yes (Life-Threatening, Hospitalization)
  Sender: FDA-Public Use
  Company Number: CH-ASTRAZENECA-2016SE13611

PATIENT
  Age: 60 Year
  Sex: Female
  Weight: 87 kg

DRUGS (14)
  1. KCL RETARD ZYMA [Concomitant]
     Active Substance: POTASSIUM CHLORIDE
     Dates: start: 20151029
  2. LASIX [Concomitant]
     Active Substance: FUROSEMIDE
     Dates: start: 20151029
  3. CALCIPARINE [Concomitant]
     Active Substance: HEPARIN CALCIUM
     Dates: start: 20151029
  4. TOPIRAMATE. [Concomitant]
     Active Substance: TOPIRAMATE
  5. STILNOX [Concomitant]
     Active Substance: ZOLPIDEM TARTRATE
  6. CYMBALTA [Concomitant]
     Active Substance: DULOXETINE HYDROCHLORIDE
  7. FLOXAPEN [Concomitant]
     Active Substance: FLUCLOXACILLIN
     Dates: start: 20151027, end: 20151029
  8. VOLTAREN [Concomitant]
     Active Substance: DICLOFENAC SODIUM
  9. MORPHINE HYDROCHLORIDE [Concomitant]
     Active Substance: MORPHINE HYDROCHLORIDE
     Dates: start: 20151029
  10. CLEXANE [Concomitant]
     Active Substance: ENOXAPARIN SODIUM
     Dates: start: 20151029
  11. CUBICIN [Suspect]
     Active Substance: DAPTOMYCIN
     Indication: STAPHYLOCOCCAL BACTERAEMIA
     Route: 041
     Dates: start: 20151029, end: 20151029
  12. PALLADON [Concomitant]
     Active Substance: HYDROMORPHONE
  13. WILD VI DE 3 [Concomitant]
  14. ROCEPHIN [Concomitant]
     Active Substance: CEFTRIAXONE SODIUM
     Dates: start: 20151024, end: 20151025

REACTIONS (6)
  - Throat tightness [Recovered/Resolved]
  - Skin test positive [Recovered/Resolved]
  - Type I hypersensitivity [Not Recovered/Not Resolved]
  - Dyspnoea [Recovered/Resolved]
  - Swollen tongue [Recovered/Resolved]
  - Lip swelling [Recovered/Resolved]

NARRATIVE: CASE EVENT DATE: 20151030
